FAERS Safety Report 9807079 (Version 2)
Quarter: 2014Q2

REPORT INFORMATION
  Report Type: Spontaneous
  Country: AR (occurrence: AR)
  Receive Date: 20140110
  Receipt Date: 20140523
  Transmission Date: 20141212
  Serious: Yes (Other)
  Sender: FDA-Public Use
  Company Number: AR-AMGEN-ARGSP2014001134

PATIENT
  Age: 73 Year
  Sex: Male

DRUGS (1)
  1. ENBREL [Suspect]
     Indication: PSORIASIS
     Dosage: 50 MG, EVERY 15 DAYS
     Route: 065
     Dates: start: 20070629

REACTIONS (2)
  - Inner ear disorder [Recovering/Resolving]
  - Deafness neurosensory [Recovered/Resolved]
